FAERS Safety Report 4514139-3 (Version None)
Quarter: 2004Q4

REPORT INFORMATION
  Report Type: 
  Country: None (occurrence: None)
  Receive Date: 20041124
  Receipt Date: 20041110
  Transmission Date: 20050328
  Serious: No
  Sender: FDA-Public Use
  Company Number: 2003AP02691

PATIENT
  Age: 47 Year
  Sex: Female
  Weight: 60 kg

DRUGS (15)
  1. ZESTRIL [Suspect]
     Indication: HYPERTENSION
     Dosage: 10 MG DAILY PO
     Route: 048
     Dates: start: 20030527, end: 20030611
  2. SIRDALUD [Suspect]
     Indication: HYPERTONIA
     Dosage: 2 MG DAILY PO
     Route: 048
     Dates: start: 20030611, end: 20030611
  3. SENOKOT [Concomitant]
  4. MAGNESIUM OXIDE [Concomitant]
  5. AMIKIN [Concomitant]
  6. TRANDATE [Concomitant]
  7. NIMOTOP [Concomitant]
  8. WELL-WELL [Concomitant]
  9. GLYCEROL 2.6% [Concomitant]
  10. MUCOSOLVAN [Concomitant]
  11. CLINCIN [Concomitant]
  12. OFLOXACIN [Concomitant]
  13. AMLODIPINE [Concomitant]
  14. NIMODIPINE [Concomitant]
  15. LABETALOL [Concomitant]

REACTIONS (2)
  - DRUG INTERACTION [None]
  - HYPOTENSION [None]
